FAERS Safety Report 8550146-1 (Version None)
Quarter: 2012Q3

REPORT INFORMATION
  Report Type: 
  Country: None (occurrence: None)
  Receive Date: 20120730
  Receipt Date: 20110425
  Transmission Date: 20120928
  Serious: No
  Sender: FDA-Public Use
  Company Number: US-ALLERGAN-1101725US

PATIENT
  Age: 80 Year
  Sex: Male
  Weight: 81.633 kg

DRUGS (1)
  1. LUMIGAN [Suspect]
     Indication: GLAUCOMA
     Dosage: 1 GTT, QHS
     Dates: end: 20110401

REACTIONS (5)
  - EYE PAIN [None]
  - TELANGIECTASIA [None]
  - OCULAR HYPERAEMIA [None]
  - MEIBOMIAN GLAND DYSFUNCTION [None]
  - BLEPHARITIS [None]
